FAERS Safety Report 7653131-7 (Version None)
Quarter: 2011Q3

REPORT INFORMATION
  Report Type: 
  Country: None (occurrence: None)
  Receive Date: 20110728
  Receipt Date: 20110713
  Transmission Date: 20111222
  Serious: Yes (Life-Threatening, Hospitalization)
  Sender: FDA-Public Use
  Company Number: 2011MA009071

PATIENT
  Age: 70 Year
  Sex: Male

DRUGS (1)
  1. NAPROXEN [Suspect]
     Indication: ARTHRALGIA
     Dosage: 250 MG;QD;ORAL
     Route: 048
     Dates: start: 20110606, end: 20110703

REACTIONS (1)
  - DUODENAL ULCER [None]
